FAERS Safety Report 24954503 (Version 1)
Quarter: 2025Q1

REPORT INFORMATION
  Report Type: Spontaneous
  Country: US (occurrence: US)
  Receive Date: 20250211
  Receipt Date: 20250211
  Transmission Date: 20250409
  Serious: No
  Sender: GE HEALTHCARE
  Company Number: US-GE HEALTHCARE-2025CSU001000

PATIENT
  Sex: Female

DRUGS (1)
  1. OMNIPAQUE [Suspect]
     Active Substance: IOHEXOL
     Indication: Computerised tomogram
     Route: 065

REACTIONS (4)
  - Anxiety [Unknown]
  - Erythema [Unknown]
  - Sensation of foreign body [Unknown]
  - Pruritus [Unknown]

NARRATIVE: CASE EVENT DATE: 20250123
